FAERS Safety Report 23024660 (Version 2)
Quarter: 2023Q4

REPORT INFORMATION
  Report Type: Spontaneous
  Country: US (occurrence: US)
  Receive Date: 20231004
  Receipt Date: 20231127
  Transmission Date: 20240110
  Serious: No
  Sender: FDA-Public Use
  Company Number: US-PADAGIS-2023PAD01402

PATIENT

DRUGS (2)
  1. MESALAMINE [Suspect]
     Active Substance: MESALAMINE
     Indication: Colitis
     Dosage: UNK, QD
     Route: 054
     Dates: start: 2016
  2. MESALAMINE [Suspect]
     Active Substance: MESALAMINE
     Dosage: UNK
     Route: 054
     Dates: end: 2016

REACTIONS (5)
  - Application site pain [Unknown]
  - Product dose omission issue [Unknown]
  - Product use issue [Unknown]
  - Product administration error [Unknown]
  - Incorrect dose administered [Unknown]
